FAERS Safety Report 5980671 (Version 4)
Quarter: 2013Q2

REPORT INFORMATION
  Report Type: Other
  Country: FI (occurrence: FI)
  Receive Date: 20060209
  Receipt Date: 20130415
  Transmission Date: 20140414
  Serious: Yes (Other)
  Sender: FDA-Public Use
  Company Number: FI-RB-2742-2006

PATIENT
  Age: 25 Year
  Sex: Female

DRUGS (5)
  1. BUPRENORPHINE HYDROCHLORIDE [Suspect]
     Indication: DRUG DEPENDENCE
     Dosage: 6-8 MGS DAILY
     Route: 065
  2. AMPHETAMINE [Suspect]
     Indication: PRODUCT USED FOR UNKNOWN INDICATION
     Dosage: DOSAGE UNKNOWN
     Route: 065
  3. DIAZEPAM [Suspect]
     Indication: PRODUCT USED FOR UNKNOWN INDICATION
     Dosage: DOSAGE UNKNOWN
     Route: 065
  4. MIDAZOLAM [Suspect]
     Indication: PRODUCT USED FOR UNKNOWN INDICATION
     Dosage: DOSAGE UNKNOWN
     Route: 065
  5. LOFEXIDINE HYDROCHLORIDE [Suspect]
     Indication: PRODUCT USED FOR UNKNOWN INDICATION
     Dosage: DOSAGE UNKNOWN
     Route: 065

REACTIONS (6)
  - Ventricular hypoplasia [Recovered/Resolved]
  - Abortion induced [Recovered/Resolved]
  - Ductus arteriosus premature closure [Recovered/Resolved]
  - Pulmonary hypertension [Recovered/Resolved]
  - Dilatation ventricular [Recovered/Resolved]
  - Exposure during pregnancy [Recovered/Resolved]
